FAERS Safety Report 17691783 (Version 2)
Quarter: 2020Q2

REPORT INFORMATION
  Report Type: Spontaneous
  Country: US (occurrence: US)
  Receive Date: 20200422
  Receipt Date: 20200609
  Transmission Date: 20200714
  Serious: No
  Sender: FDA-Public Use
  Company Number: US-ASTRAZENECA-2020SE51740

PATIENT
  Sex: Female

DRUGS (2)
  1. SINGULAIR [Concomitant]
     Active Substance: MONTELUKAST SODIUM
     Dosage: AT NIGHT
  2. SYMBICORT [Suspect]
     Active Substance: BUDESONIDE\FORMOTEROL FUMARATE DIHYDRATE
     Indication: ASTHMA
     Dosage: 80/4.5MCG TWICE DAILY
     Route: 055

REACTIONS (6)
  - Device delivery system issue [Unknown]
  - Throat tightness [Unknown]
  - Throat irritation [Unknown]
  - Product dose omission [Unknown]
  - Oropharyngeal discomfort [Unknown]
  - Chest discomfort [Unknown]
